FAERS Safety Report 13641599 (Version 4)
Quarter: 2019Q1

REPORT INFORMATION
  Report Type: Report from Study
  Country: US (occurrence: US)
  Receive Date: 20170612
  Receipt Date: 20190116
  Transmission Date: 20190417
  Serious: No
  Sender: FDA-Public Use
  Company Number: PHEH2017US017682

PATIENT
  Sex: Female

DRUGS (1)
  1. COSENTYX [Suspect]
     Active Substance: SECUKINUMAB
     Indication: PSORIASIS
     Dosage: 300 MG, QMO
     Route: 058
     Dates: start: 201610

REACTIONS (6)
  - Dysgeusia [Unknown]
  - Oral infection [Unknown]
  - Oral herpes [Unknown]
  - Oropharyngeal pain [Unknown]
  - Stomatitis [Unknown]
  - Dysphagia [Unknown]
